FAERS Safety Report 6790215-X (Version None)
Quarter: 2010Q2

REPORT INFORMATION
  Report Type: 
  Country: None (occurrence: None)
  Receive Date: 20100624
  Receipt Date: 20100616
  Transmission Date: 20101027
  Serious: Yes (Hospitalization)
  Sender: FDA-Public Use
  Company Number: CH-ASTRAZENECA-2010SE28381

PATIENT
  Age: 76 Year
  Sex: Male

DRUGS (3)
  1. ATACAND HCT [Suspect]
     Indication: ESSENTIAL HYPERTENSION
     Route: 048
  2. ASPIRIN [Concomitant]
  3. METFORMIN [Concomitant]
     Indication: TYPE 2 DIABETES MELLITUS
     Route: 048

REACTIONS (1)
  - RENAL FAILURE ACUTE [None]
